FAERS Safety Report 9415259 (Version 7)
Quarter: 2014Q3

REPORT INFORMATION
  Report Type: Report from Study
  Country: FR (occurrence: FR)
  Receive Date: 20130723
  Receipt Date: 20140703
  Transmission Date: 20150326
  Serious: Yes (Hospitalization)
  Sender: FDA-Public Use
  Company Number: FR-ROCHE-1248725

PATIENT
  Age: 56 Year
  Sex: Male
  Weight: 70 kg

DRUGS (5)
  1. DOXYCYCLINE. [Concomitant]
     Active Substance: DOXYCYCLINE
     Indication: RASH
     Route: 048
     Dates: start: 20130627, end: 20130701
  2. BETAMETHASONE [Concomitant]
     Active Substance: BETAMETHASONE
     Indication: PRURITUS
     Route: 061
     Dates: start: 20130627
  3. VEMURAFENIB [Suspect]
     Active Substance: VEMURAFENIB
     Indication: MALIGNANT MELANOMA
     Dosage: DATE OF LAST DOSE PRIOR TO SERIOUS ADVERSE EVENT: 10/JUL/2013
     Route: 048
     Dates: start: 20130613
  4. COBIMETINIB [Suspect]
     Active Substance: COBIMETINIB
     Indication: MALIGNANT MELANOMA
     Route: 048
     Dates: start: 20130613, end: 20130703
  5. ERYTHROMYCINE [Concomitant]
     Active Substance: ERYTHROMYCIN
     Indication: RASH PUSTULAR
     Route: 061
     Dates: start: 20130627

REACTIONS (1)
  - Pancreatitis [Recovered/Resolved]

NARRATIVE: CASE EVENT DATE: 20130711
